FAERS Safety Report 10982531 (Version 2)
Quarter: 2015Q2

REPORT INFORMATION
  Report Type: Spontaneous
  Country: JP (occurrence: None)
  Receive Date: 20150401
  Receipt Date: 20150421
  Transmission Date: 20150821
  Serious: Yes (Death, Life-Threatening, Hospitalization)
  Sender: FDA-Public Use
  Company Number: 2014FE01817

PATIENT
  Age: 85 Year
  Sex: Male
  Weight: 64 kg

DRUGS (6)
  1. PREDONINE (PREDNISOLONE) [Concomitant]
  2. XTANDI [Suspect]
     Active Substance: ENZALUTAMIDE
     Indication: HORMONE-REFRACTORY PROSTATE CANCER
     Dosage: 160 MG, 1 TIME DAILY
     Route: 048
     Dates: start: 20140610, end: 20140617
  3. LOXONIN (LOXOPROFEN SODIUM) [Concomitant]
     Active Substance: LOXOPROFEN SODIUM
  4. REBAMIPIDE [Concomitant]
     Active Substance: REBAMIPIDE
  5. DOGMATYL (SULPIRIDE) [Concomitant]
  6. GONAX [Suspect]
     Active Substance: DEGARELIX
     Indication: HORMONE-REFRACTORY PROSTATE CANCER
     Route: 058
     Dates: start: 20140612, end: 20140612

REACTIONS (2)
  - Cardiac failure [None]
  - Intentional product use issue [None]

NARRATIVE: CASE EVENT DATE: 20140617
